FAERS Safety Report 8777091 (Version 1)
Quarter: 2012Q4

REPORT INFORMATION
  Report Type: 
  Country: IT (occurrence: IT)
  Receive Date: 20120911
  Receipt Date: 20120911
  Transmission Date: 20130627
  Serious: Yes (Hospitalization)
  Sender: FDA-Public Use
  Company Number: IT-BRISTOL-MYERS SQUIBB COMPANY-16920738

PATIENT
  Age: 70 Year
  Sex: Male

DRUGS (6)
  1. COUMADIN TABS 5 MG [Suspect]
     Indication: CEREBRAL ISCHAEMIA
     Route: 048
     Dates: start: 20120210, end: 20120510
  2. SIMVASTATIN [Concomitant]
  3. TAMSULOSIN HCL [Concomitant]
  4. KCL RETARD [Concomitant]
     Dosage: tablet
  5. TAPAZOLE [Concomitant]
     Dosage: tablet
  6. ALMARYTM [Concomitant]

REACTIONS (2)
  - Haemoptysis [Unknown]
  - Musculoskeletal pain [Unknown]
